FAERS Safety Report 21086826 (Version 2)
Quarter: 2022Q3

REPORT INFORMATION
  Report Type: Spontaneous
  Country: US (occurrence: US)
  Receive Date: 20220715
  Receipt Date: 20220729
  Transmission Date: 20221027
  Serious: No
  Sender: FDA-Public Use
  Company Number: US-NOVARTISTESTPH-NVSC2022US159995

PATIENT
  Sex: Female

DRUGS (1)
  1. XIIDRA [Suspect]
     Active Substance: LIFITEGRAST
     Indication: Dry eye
     Dosage: UNK, BID (ONE DROP INTO BOTH EYES (1 IN MORNING AND 1 IN EVENING)
     Route: 047

REACTIONS (3)
  - Discomfort [Unknown]
  - Eye inflammation [Unknown]
  - Drug intolerance [Unknown]
